FAERS Safety Report 9886400 (Version 1)
Quarter: 2014Q1

REPORT INFORMATION
  Report Type: Spontaneous
  Country: JP (occurrence: JP)
  Receive Date: 20140210
  Receipt Date: 20140210
  Transmission Date: 20141002
  Serious: Yes (Other)
  Sender: FDA-Public Use
  Company Number: JP-PFIZER INC-2014035651

PATIENT
  Age: 70 Year
  Sex: Male

DRUGS (1)
  1. SEIBULE [Suspect]
     Indication: TYPE 2 DIABETES MELLITUS
     Dosage: 25 MG, 2X/DAY
     Route: 048
     Dates: start: 20130829, end: 201309

REACTIONS (1)
  - Interstitial lung disease [Recovering/Resolving]
